FAERS Safety Report 4949776-5 (Version None)
Quarter: 2006Q1

REPORT INFORMATION
  Report Type: 
  Country: None (occurrence: None)
  Receive Date: 20060315
  Receipt Date: 20060224
  Transmission Date: 20060701
  Serious: Yes (Other)
  Sender: FDA-Public Use
  Company Number: FR200602004692

PATIENT
  Age: 67 Year
  Sex: Female

DRUGS (6)
  1. FORTEO [Suspect]
     Dosage: 20 UG, DAILY (1/D), SUBCUTANEOUS
     Route: 058
     Dates: start: 20050301
  2. FORTEO [Concomitant]
  3. FERROUS SULFATE TAB [Concomitant]
  4. XANAX [Concomitant]
  5. SECTRAL [Concomitant]
  6. LOPERAMIDE HCL [Concomitant]

REACTIONS (1)
  - COLORECTAL CANCER [None]
